FAERS Safety Report 5406208-0 (Version None)
Quarter: 2007Q3

REPORT INFORMATION
  Report Type: 
  Country: None (occurrence: None)
  Receive Date: 20070802
  Receipt Date: 20070802
  Transmission Date: 20080115
  Serious: Yes (Hospitalization, Other)
  Sender: FDA-Public Use
  Company Number: None

PATIENT
  Age: 27 Year
  Sex: Female
  Weight: 106.1417 kg

DRUGS (1)
  1. LEXAPRO [Suspect]
     Indication: ANXIETY
     Dosage: 10MG ONCE DAILY PO
     Route: 048
     Dates: start: 20070301, end: 20070801

REACTIONS (22)
  - ALOPECIA [None]
  - ANORGASMIA [None]
  - ANXIETY [None]
  - CHILLS [None]
  - CONDITION AGGRAVATED [None]
  - CRYING [None]
  - DEPRESSION [None]
  - DIARRHOEA [None]
  - DIZZINESS [None]
  - DRUG WITHDRAWAL SYNDROME [None]
  - FURUNCLE [None]
  - HOT FLUSH [None]
  - HYPERHIDROSIS [None]
  - IRRITABILITY [None]
  - LIBIDO DECREASED [None]
  - MYALGIA [None]
  - NAUSEA [None]
  - RESTLESS LEGS SYNDROME [None]
  - TREMOR [None]
  - VISION BLURRED [None]
  - VISUAL DISTURBANCE [None]
  - WEIGHT INCREASED [None]
